FAERS Safety Report 7749426-9 (Version None)
Quarter: 2011Q3

REPORT INFORMATION
  Report Type: 
  Country: None (occurrence: None)
  Receive Date: 20110914
  Receipt Date: 20110831
  Transmission Date: 20111222
  Serious: No
  Sender: FDA-Public Use
  Company Number: US-B.I. PHARMACEUTICALS,INC./RIDGEFIELD-2011-BP-21165BP

PATIENT
  Age: 84 Year
  Sex: Female

DRUGS (7)
  1. VIT B COMPLEX [Concomitant]
  2. TRUSOPT [Concomitant]
  3. PRADAXA [Suspect]
     Indication: ATRIAL FIBRILLATION
     Dosage: 300 MG
     Route: 048
     Dates: start: 20110801
  4. FOLIC ACID [Concomitant]
  5. CORDARONE [Concomitant]
  6. CARDIZEM [Concomitant]
  7. MELATONIN [Concomitant]

REACTIONS (2)
  - RASH PAPULAR [None]
  - OEDEMA PERIPHERAL [None]
